FAERS Safety Report 23062829 (Version 1)
Quarter: 2023Q4

REPORT INFORMATION
  Report Type: Spontaneous
  Country: US (occurrence: US)
  Receive Date: 20231013
  Receipt Date: 20231013
  Transmission Date: 20240110
  Serious: No
  Sender: FDA-Public Use
  Company Number: US-APOTEX-2023AP009713

PATIENT
  Sex: Female

DRUGS (2)
  1. FLUTICASONE PROPIONATE [Suspect]
     Active Substance: FLUTICASONE PROPIONATE
     Indication: Product used for unknown indication
     Dosage: UNK, 2 YEARS AGO
     Route: 065
  2. FLUTICASONE PROPIONATE [Suspect]
     Active Substance: FLUTICASONE PROPIONATE
     Dosage: UNK
     Route: 065
     Dates: start: 20230626

REACTIONS (9)
  - Gastroenteritis viral [Unknown]
  - Eye allergy [Unknown]
  - Ocular discomfort [Unknown]
  - Device breakage [Unknown]
  - Product dose omission issue [Unknown]
  - Product closure issue [Unknown]
  - Device defective [Unknown]
  - Product packaging issue [Unknown]
  - Product contamination [Unknown]

NARRATIVE: CASE EVENT DATE: 20230626
